FAERS Safety Report 8231198-5 (Version None)
Quarter: 2012Q1

REPORT INFORMATION
  Report Type: 
  Country: None (occurrence: None)
  Receive Date: 20120323
  Receipt Date: 20120323
  Transmission Date: 20120608
  Serious: Yes (Life-Threatening, Hospitalization, Disabling)
  Sender: FDA-Public Use
  Company Number: None

PATIENT
  Age: 77 Year
  Sex: Male
  Weight: 111 kg

DRUGS (21)
  1. DUONEB [Concomitant]
     Route: 045
  2. LEVEMIR [Concomitant]
     Route: 058
  3. VICODIN [Concomitant]
     Route: 048
  4. CALCIUM CARBONATE [Concomitant]
     Route: 048
  5. WARFARIN SODIUM [Suspect]
     Indication: ATRIAL FIBRILLATION
     Dosage: VARIES CHRONIC
     Route: 048
  6. SINGULAIR [Concomitant]
     Route: 048
  7. MIRALAX [Concomitant]
     Route: 048
  8. POTASSIUM CHLORIDE [Concomitant]
     Route: 048
  9. LASIX [Concomitant]
     Route: 048
  10. INSULIN ASPART [Concomitant]
     Route: 051
  11. LEVAQUIN [Concomitant]
     Route: 048
  12. LASIX [Concomitant]
     Route: 048
  13. ASPIRIN [Concomitant]
     Route: 048
  14. NEXIUM [Concomitant]
     Route: 048
  15. MULTI-VITAMIN [Concomitant]
     Route: 048
  16. DIGOXIN [Concomitant]
     Route: 048
  17. IRON [Concomitant]
     Route: 048
  18. ZOFRAN [Concomitant]
     Route: 048
  19. TIKOSYN [Concomitant]
     Route: 048
  20. VIDAZA [Concomitant]
  21. SENNA [Concomitant]
     Route: 048

REACTIONS (11)
  - BLOOD GLUCOSE INCREASED [None]
  - LOSS OF CONSCIOUSNESS [None]
  - DIZZINESS [None]
  - ABDOMINAL DISTENSION [None]
  - HAEMOGLOBIN DECREASED [None]
  - OCCULT BLOOD POSITIVE [None]
  - SPLENIC RUPTURE [None]
  - NAUSEA [None]
  - ORTHOSTATIC INTOLERANCE [None]
  - INTRA-ABDOMINAL HAEMORRHAGE [None]
  - SYNCOPE [None]
